FAERS Safety Report 25034641 (Version 1)
Quarter: 2025Q1

REPORT INFORMATION
  Report Type: Spontaneous
  Country: US (occurrence: US)
  Receive Date: 20250304
  Receipt Date: 20250304
  Transmission Date: 20250408
  Serious: Yes (Hospitalization)
  Sender: RECORDATI
  Company Number: US-RECORDATI RARE DISEASES-2025001295

PATIENT
  Sex: Female
  Weight: 6.395 kg

DRUGS (1)
  1. CARBAGLU [Suspect]
     Active Substance: CARGLUMIC ACID
     Indication: Product used for unknown indication
     Dosage: DISSOLVE TWO AND ONE HALF  200 MG TABLETS IN 7.5 ML WATER PER TABLET AND INGEST, BID
     Route: 048

REACTIONS (1)
  - Hospitalisation [Recovered/Resolved]
